FAERS Safety Report 8574591-3 (Version None)
Quarter: 2012Q3

REPORT INFORMATION
  Report Type: 
  Country: None (occurrence: None)
  Receive Date: 20120806
  Receipt Date: 20120724
  Transmission Date: 20120928
  Serious: Yes (Death)
  Sender: FDA-Public Use
  Company Number: GB-MYLANLABS-2012S1015430

PATIENT
  Sex: Male

DRUGS (2)
  1. LAMOTRIGINE [Suspect]
     Route: 064
  2. FOLIC ACID [Concomitant]

REACTIONS (6)
  - POLYDACTYLY [None]
  - MATERNAL EXPOSURE DURING PREGNANCY [None]
  - ANAL ATRESIA [None]
  - MATERNAL EXPOSURE BEFORE PREGNANCY [None]
  - RENAL APLASIA [None]
  - EXPOSURE VIA FATHER [None]
